FAERS Safety Report 23268392 (Version 2)
Quarter: 2024Q1

REPORT INFORMATION
  Report Type: Spontaneous
  Country: US (occurrence: US)
  Receive Date: 20231206
  Receipt Date: 20240120
  Transmission Date: 20240410
  Serious: No
  Sender: FDA-Public Use
  Company Number: US-SA-SAC20231201001016

PATIENT
  Age: 65 Year
  Sex: Male

DRUGS (2)
  1. ALTUVIIIO [Suspect]
     Active Substance: EFANESOCTOCOG ALFA
     Dosage: 50 IU/KG (4266 IU), 1 HOUR PRIOR TO DENTAL EXTRACTION/ PRE-OPERATIVE TREATMENT FOR DENTAL EXTRACTION
     Route: 040
     Dates: start: 20231127, end: 20231127
  2. ROSUVASTATIN [Concomitant]
     Active Substance: ROSUVASTATIN
     Dosage: 40 MG, QD

REACTIONS (4)
  - Nausea [Recovered/Resolved]
  - Abdominal pain [Recovered/Resolved]
  - Flushing [Recovered/Resolved]
  - Dyspnoea [Recovered/Resolved]

NARRATIVE: CASE EVENT DATE: 20231127
